FAERS Safety Report 25428633 (Version 2)
Quarter: 2025Q3

REPORT INFORMATION
  Report Type: Spontaneous
  Country: EU (occurrence: EU)
  Receive Date: 20250612
  Receipt Date: 20250718
  Transmission Date: 20251021
  Serious: Yes (Other)
  Sender: ABBVIE
  Company Number: EU-PFIZER INC-PV202500052163

PATIENT
  Sex: Male

DRUGS (2)
  1. AVIBACTAM\AZTREONAM [Suspect]
     Active Substance: AVIBACTAM\AZTREONAM
     Indication: Klebsiella infection
     Route: 042
  2. AVIBACTAM\AZTREONAM [Suspect]
     Active Substance: AVIBACTAM\AZTREONAM
     Indication: Klebsiella infection
     Route: 042

REACTIONS (3)
  - Off label use [Unknown]
  - Drug ineffective [Not Recovered/Not Resolved]
  - Product use issue [Unknown]
